FAERS Safety Report 10028812 (Version 1)
Quarter: 2014Q1

REPORT INFORMATION
  Report Type: Spontaneous
  Country: US (occurrence: US)
  Receive Date: 20140321
  Receipt Date: 20140321
  Transmission Date: 20141002
  Serious: Yes (Other)
  Sender: FDA-Public Use
  Company Number: US-TEVA-469894USA

PATIENT
  Age: 10 Year
  Sex: Female

DRUGS (6)
  1. BLEOMYCIN [Suspect]
     Indication: SMALL CELL CARCINOMA
     Dosage: 15 IU/M2 EVERY 3-4W (PART OF VPCBAE CHEMOTHERAPY)
  2. CISPLATIN [Suspect]
     Indication: SMALL CELL CARCINOMA
     Dosage: EVERY 3-4W (PART OF VPCBAE CHEMOTHERAPY)
  3. DOXORUBICIN [Suspect]
     Indication: SMALL CELL CARCINOMA
     Dosage: EVERY 3-4W (PART OF VPCBAE CHEMOTHERAPY)
  4. ETOPOSIDE [Suspect]
     Indication: SMALL CELL CARCINOMA
     Dosage: EVERY 3-4W (PART OF VPCBAE CHEMOTHERAPY)
  5. CYCLOPHOSPHAMIDE [Suspect]
     Indication: SMALL CELL CARCINOMA
     Dosage: EVERY 3-4W (PART OF VPCBAE CHEMOTHERAPY)
     Route: 065
  6. VINBLASTINE [Suspect]
     Indication: SMALL CELL CARCINOMA
     Dosage: EVERY 3-4W (PART OF VPCBAE CHEMOTHERAPY)
     Route: 065

REACTIONS (4)
  - Bone marrow failure [Unknown]
  - Febrile neutropenia [Unknown]
  - Decreased appetite [Unknown]
  - Hypomagnesaemia [Unknown]
